FAERS Safety Report 7628613-4 (Version None)
Quarter: 2011Q3

REPORT INFORMATION
  Report Type: 
  Country: None (occurrence: None)
  Receive Date: 20110722
  Receipt Date: 20110131
  Transmission Date: 20111222
  Serious: No
  Sender: FDA-Public Use
  Company Number: US-BAYER-2011-012082

PATIENT
  Sex: Male

DRUGS (2)
  1. ALCOHOL SWABS [Concomitant]
  2. BETASERON [Suspect]

REACTIONS (1)
  - INJECTION SITE ERYTHEMA [None]
